FAERS Safety Report 6757676-3 (Version None)
Quarter: 2010Q2

REPORT INFORMATION
  Report Type: 
  Country: None (occurrence: None)
  Receive Date: 20100604
  Receipt Date: 20100604
  Transmission Date: 20101027
  Serious: Yes (Hospitalization)
  Sender: FDA-Public Use
  Company Number: None

PATIENT
  Sex: Female
  Weight: 64.9 kg

DRUGS (4)
  1. BEVACIZUMAB (RHUMAB VEGF) [Suspect]
     Dosage: 350 MG
  2. LEUCOVORIN CALCIUM [Suspect]
     Dosage: 720 MG
  3. ELOXATIN [Suspect]
     Dosage: 150 MG
  4. FLUOROURACIL [Suspect]
     Dosage: 5020 MG

REACTIONS (6)
  - INTERNATIONAL NORMALISED RATIO DECREASED [None]
  - PAIN IN EXTREMITY [None]
  - PROTHROMBIN TIME ABNORMAL [None]
  - PULMONARY EMBOLISM [None]
  - SINUS BRADYCARDIA [None]
  - SUPRAVENTRICULAR EXTRASYSTOLES [None]
